FAERS Safety Report 10190446 (Version 2)
Quarter: 2014Q2

REPORT INFORMATION
  Report Type: Spontaneous
  Country: US (occurrence: US)
  Receive Date: 20140522
  Receipt Date: 20140624
  Transmission Date: 20141212
  Serious: Yes (Other)
  Sender: FDA-Public Use
  Company Number: US-009507513-1405USA008059

PATIENT
  Age: 9 Year
  Sex: Female
  Weight: 29.25 kg

DRUGS (2)
  1. GRASTEK [Suspect]
     Indication: SEASONAL ALLERGY
     Dosage: UNK
     Route: 060
     Dates: start: 20140429, end: 20140429
  2. ATARAX (HYDROXYZINE HYDROCHLORIDE) [Concomitant]

REACTIONS (4)
  - Hypersensitivity [Recovered/Resolved]
  - Pharyngeal oedema [Recovered/Resolved]
  - Throat tightness [Recovered/Resolved]
  - Cough [Recovered/Resolved]
